FAERS Safety Report 8962829 (Version 2)
Quarter: 2013Q1

REPORT INFORMATION
  Report Type: Spontaneous
  Country: UA (occurrence: UA)
  Receive Date: 20121214
  Receipt Date: 20130208
  Transmission Date: 20140127
  Serious: Yes (Other)
  Sender: FDA-Public Use
  Company Number: UA-PFIZER INC-2012312823

PATIENT
  Age: 4 Day
  Sex: Male
  Weight: 1.12 kg

DRUGS (10)
  1. CEFOBID [Suspect]
     Indication: PNEUMONIA
     Dosage: 50 MG/KG, UNK
     Route: 042
     Dates: start: 20121129, end: 201212
  2. CALCIUM GLUCONATE [Concomitant]
     Dosage: UNK
  3. CONTRYCAL [Concomitant]
     Dosage: UNK
  4. DICYNONE [Concomitant]
     Dosage: UNK
  5. VITAMIN C [Concomitant]
     Dosage: UNK
  6. PANANGIN [Concomitant]
     Dosage: UNK
  7. SOL. GLUCOSE 10% [Concomitant]
     Dosage: UNK
  8. AMINOVEN INFANT 10% [Concomitant]
     Dosage: UNK
  9. NORMAL SALINE [Concomitant]
     Dosage: UNK
  10. MAGNESIUM SULFATE [Concomitant]
     Dosage: UNK

REACTIONS (4)
  - Gastric haemorrhage [Recovered/Resolved]
  - Pulmonary haemorrhage [Recovered/Resolved]
  - Cerebral haemorrhage neonatal [Recovered/Resolved]
  - Coagulation time prolonged [Unknown]
